FAERS Safety Report 16442303 (Version 1)
Quarter: 2019Q2

REPORT INFORMATION
  Report Type: Report from Study
  Country: None (occurrence: US)
  Receive Date: 20190617
  Receipt Date: 20190617
  Transmission Date: 20190711
  Serious: Yes (Other)
  Sender: FDA-Public Use
  Company Number: US-US WORLDMEDS, LLC-USW201903-000577

PATIENT
  Sex: Male
  Weight: 140.32 kg

DRUGS (6)
  1. APOKYN [Suspect]
     Active Substance: APOMORPHINE HYDROCHLORIDE
     Indication: PARKINSON^S DISEASE
     Route: 058
     Dates: start: 20170616
  2. KEPPRA [Concomitant]
     Active Substance: LEVETIRACETAM
  3. SELEGILINE [Concomitant]
     Active Substance: SELEGILINE
  4. CARBIDOPA/LEVODOPA [Concomitant]
     Active Substance: CARBIDOPA\LEVODOPA
  5. DILANTIN [Concomitant]
     Active Substance: PHENYTOIN
  6. TAMSULOSIN [Concomitant]
     Active Substance: TAMSULOSIN

REACTIONS (3)
  - Parkinson^s disease [Not Recovered/Not Resolved]
  - Anxiety [Not Recovered/Not Resolved]
  - Dysphagia [Not Recovered/Not Resolved]
